FAERS Safety Report 7462076 (Version 2)
Quarter: 2014Q1

REPORT INFORMATION
  Report Type: Spontaneous
  Country: US (occurrence: US)
  Receive Date: 20100709
  Receipt Date: 20140221
  Transmission Date: 20141002
  Serious: Yes (Other)
  Sender: FDA-Public Use
  Company Number: US-AMGEN-KDL421635

PATIENT
  Age: 71 Year
  Sex: Male

DRUGS (1)
  1. ENBREL [Suspect]
     Indication: PSORIASIS
     Dosage: 50 MG, QWK
     Route: 058
     Dates: start: 20060605

REACTIONS (5)
  - Blindness [Not Recovered/Not Resolved]
  - Age-related macular degeneration [Not Recovered/Not Resolved]
  - Bradycardia [Recovered/Resolved]
  - Pain in extremity [Not Recovered/Not Resolved]
  - Psoriasis [Recovered/Resolved]
